FAERS Safety Report 7292816-1 (Version None)
Quarter: 2011Q1

REPORT INFORMATION
  Report Type: 
  Country: None (occurrence: None)
  Receive Date: 20110203
  Receipt Date: 20110120
  Transmission Date: 20110831
  Serious: Yes (Hospitalization)
  Sender: FDA-Public Use
  Company Number: 020089

PATIENT
  Sex: Male
  Weight: 118 kg

DRUGS (3)
  1. CIMZIA [Suspect]
     Indication: CROHN'S DISEASE
     Dosage: SUBCUTANEOUS
     Route: 058
     Dates: start: 20100428
  2. PREDNISONE [Concomitant]
  3. ACETAMINOPHEN [Concomitant]

REACTIONS (18)
  - BLOOD GLUCOSE INCREASED [None]
  - BLOOD MAGNESIUM DECREASED [None]
  - BLOOD SODIUM DECREASED [None]
  - PLATELET COUNT INCREASED [None]
  - CONDITION AGGRAVATED [None]
  - BLOOD CHLORIDE DECREASED [None]
  - ASPARTATE AMINOTRANSFERASE DECREASED [None]
  - HAEMATOCRIT DECREASED [None]
  - GLYCOSYLATED HAEMOGLOBIN INCREASED [None]
  - GAMMA-GLUTAMYLTRANSFERASE INCREASED [None]
  - CROHN'S DISEASE [None]
  - ABDOMINAL ABSCESS [None]
  - PROTHROMBIN TIME PROLONGED [None]
  - HAEMOGLOBIN DECREASED [None]
  - ENTEROCOCCAL INFECTION [None]
  - RED BLOOD CELL COUNT DECREASED [None]
  - SPINAL OSTEOARTHRITIS [None]
  - CULTURE URINE POSITIVE [None]
